FAERS Safety Report 5094079-4 (Version None)
Quarter: 2006Q3

REPORT INFORMATION
  Report Type: 
  Country: None (occurrence: None)
  Receive Date: 20060831
  Receipt Date: 20060803
  Transmission Date: 20061208
  Serious: Yes (Hospitalization)
  Sender: FDA-Public Use
  Company Number: FR-SANOFI-SYNTHELABO-A02200601994

PATIENT
  Age: 74 Year
  Sex: Female
  Weight: 77 kg

DRUGS (5)
  1. GEMZAR [Concomitant]
     Route: 042
     Dates: start: 20060227, end: 20060227
  2. ELOXATIN [Suspect]
     Indication: B-CELL LYMPHOMA
     Route: 042
     Dates: start: 20060227, end: 20060227
  3. TRILEPTAL [Concomitant]
     Dosage: UNK
     Route: 048
  4. NEURONTIN [Concomitant]
     Dosage: UNK
     Route: 048
  5. OXYCONTIN [Concomitant]
     Dosage: UNK
     Route: 048

REACTIONS (3)
  - LARYNGOSPASM [None]
  - LHERMITTE'S SIGN [None]
  - PERIPHERAL SENSORY NEUROPATHY [None]
